FAERS Safety Report 23074664 (Version 1)
Quarter: 2023Q4

REPORT INFORMATION
  Report Type: Spontaneous
  Country: FR (occurrence: FR)
  Receive Date: 20231017
  Receipt Date: 20231017
  Transmission Date: 20240110
  Serious: Yes (Hospitalization)
  Sender: FDA-Public Use
  Company Number: None

PATIENT
  Age: 72 Year
  Sex: Male
  Weight: 74 kg

DRUGS (2)
  1. PACLITAXEL [Suspect]
     Active Substance: PACLITAXEL
     Indication: Adenocarcinoma pancreas
     Dosage: 1900 MILLIGRAM
     Route: 042
     Dates: start: 20220908, end: 20230531
  2. GEMCITABINE HYDROCHLORIDE [Suspect]
     Active Substance: GEMCITABINE HYDROCHLORIDE
     Indication: Adenocarcinoma pancreas
     Dosage: 1900 MILLIGRAM
     Route: 042
     Dates: start: 20220908, end: 20230531

REACTIONS (1)
  - Pachymeningitis [Recovered/Resolved]

NARRATIVE: CASE EVENT DATE: 20230417
